FAERS Safety Report 5455427-6 (Version None)
Quarter: 2007Q3

REPORT INFORMATION
  Report Type: 
  Country: None (occurrence: None)
  Receive Date: 20070918
  Receipt Date: 20070228
  Transmission Date: 20080115
  Serious: Yes (Hospitalization)
  Sender: FDA-Public Use
  Company Number: US-ASTRAZENECA-2006UW21431

PATIENT
  Sex: Female
  Weight: 81.8 kg

DRUGS (6)
  1. SEROQUEL [Suspect]
     Indication: DEPRESSION
     Route: 048
     Dates: start: 20010101
  2. HALDOL [Concomitant]
     Dates: start: 19860101, end: 19910101
  3. THORAZINE [Concomitant]
     Dates: start: 19860101, end: 19910101
  4. ZYPREXA [Concomitant]
     Dates: start: 19920101
  5. AVANDAMET [Concomitant]
  6. METHADONE HCL [Concomitant]

REACTIONS (1)
  - DIABETES MELLITUS [None]
